FAERS Safety Report 25338730 (Version 4)
Quarter: 2025Q3

REPORT INFORMATION
  Report Type: Report from Study
  Country: US (occurrence: US)
  Receive Date: 20250520
  Receipt Date: 20250721
  Transmission Date: 20251020
  Serious: Yes (Other)
  Sender: MALLINCKRODT
  Company Number: US-MALLINCKRODT-MNK202502847

PATIENT
  Age: 73 Year
  Sex: Female

DRUGS (5)
  1. CORTICOTROPIN [Suspect]
     Active Substance: CORTICOTROPIN
     Indication: Rheumatoid arthritis
     Dates: start: 20250508, end: 20250530
  2. CORTICOTROPIN [Suspect]
     Active Substance: CORTICOTROPIN
     Dates: start: 2025
  3. PROLIA [Concomitant]
     Active Substance: DENOSUMAB
  4. HUMIRA [Concomitant]
     Active Substance: ADALIMUMAB
  5. PREDNISONE [Concomitant]
     Active Substance: PREDNISONE

REACTIONS (7)
  - Blindness [Unknown]
  - Cataract [Unknown]
  - Gait disturbance [Unknown]
  - Sensitivity to weather change [Unknown]
  - Dyspnoea [Unknown]
  - Weight loss poor [Unknown]
  - Injection site pain [Unknown]

NARRATIVE: CASE EVENT DATE: 20250101
